FAERS Safety Report 6019558-4 (Version None)
Quarter: 2008Q4

REPORT INFORMATION
  Report Type: 
  Country: None (occurrence: None)
  Receive Date: 20081224
  Receipt Date: 20081218
  Transmission Date: 20090506
  Serious: Yes (Other)
  Sender: FDA-Public Use
  Company Number: DE-AMGEN-UK309754

PATIENT
  Sex: Male
  Weight: 75 kg

DRUGS (1)
  1. NEUPOGEN [Suspect]
     Indication: BLOOD STEM CELL HARVEST
     Route: 058
     Dates: start: 20080913, end: 20080917

REACTIONS (9)
  - ABSCESS [None]
  - CELLULITIS STAPHYLOCOCCAL [None]
  - DERMATITIS [None]
  - ERYTHEMA [None]
  - FATIGUE [None]
  - IMPAIRED HEALING [None]
  - INFLAMMATION [None]
  - SKIN ULCER [None]
  - SWELLING [None]
